FAERS Safety Report 4761681-6 (Version None)
Quarter: 2005Q3

REPORT INFORMATION
  Report Type: 
  Country: None (occurrence: None)
  Receive Date: 20050906
  Receipt Date: 20050829
  Transmission Date: 20060218
  Serious: Yes (Hospitalization)
  Sender: FDA-Public Use
  Company Number: PHBS2005IN12747

PATIENT
  Age: 65 Year
  Sex: Female

DRUGS (1)
  1. GENTEAL (NVO) [Suspect]
     Indication: DRY EYE
     Dosage: 1 DF, QID

REACTIONS (3)
  - CONJUNCTIVAL ULCER [None]
  - INTRAOCULAR PRESSURE INCREASED [None]
  - ULCERATIVE KERATITIS [None]
